FAERS Safety Report 4291470-0 (Version None)
Quarter: 2004Q1

REPORT INFORMATION
  Report Type: 
  Country: None (occurrence: None)
  Receive Date: 20040211
  Receipt Date: 20021108
  Transmission Date: 20041129
  Serious: No
  Sender: FDA-Public Use
  Company Number: US-BRISTOL-MYERS SQUIBB COMPANY-12105813

PATIENT
  Age: 55 Year
  Sex: Female
  Weight: 74 kg

DRUGS (6)
  1. KENALOG [Suspect]
     Indication: PSORIASIS
     Dosage: DURATION OF THERAPY:  SEVERAL MONTHS
     Route: 061
  2. INSULIN [Concomitant]
  3. COZAAR [Concomitant]
  4. CALCIUM [Concomitant]
  5. VITAMIN C [Concomitant]
  6. FLAXSEED OIL [Concomitant]

REACTIONS (1)
  - PSORIASIS [None]
